FAERS Safety Report 17861308 (Version 4)
Quarter: 2022Q2

REPORT INFORMATION
  Report Type: Report from Study
  Country: US (occurrence: US)
  Receive Date: 20200604
  Receipt Date: 20220513
  Transmission Date: 20220721
  Serious: No
  Sender: FDA-Public Use
  Company Number: US-HARMONY BIOSCIENCES-2020HMY00192

PATIENT
  Age: 40 Year
  Sex: Female

DRUGS (4)
  1. WAKIX [Suspect]
     Active Substance: PITOLISANT HYDROCHLORIDE
     Indication: Narcolepsy
     Dosage: UNK
     Dates: start: 20200212, end: 2020
  2. WAKIX [Suspect]
     Active Substance: PITOLISANT HYDROCHLORIDE
     Indication: Cataplexy
  3. WAKIX [Suspect]
     Active Substance: PITOLISANT HYDROCHLORIDE
     Indication: Narcolepsy
     Dosage: UNK
     Dates: start: 20200212, end: 2020
  4. WAKIX [Suspect]
     Active Substance: PITOLISANT HYDROCHLORIDE
     Indication: Cataplexy
     Dosage: UNK
     Dates: start: 20200212, end: 2020

REACTIONS (3)
  - Fatigue [Not Recovered/Not Resolved]
  - Cataplexy [Not Recovered/Not Resolved]
  - Drug ineffective [Recovered/Resolved]

NARRATIVE: CASE EVENT DATE: 20200201
